FAERS Safety Report 5479150-7 (Version None)
Quarter: 2007Q4

REPORT INFORMATION
  Report Type: 
  Country: None (occurrence: None)
  Receive Date: 20071008
  Receipt Date: 20071002
  Transmission Date: 20080405
  Serious: Yes (Death, Other)
  Sender: FDA-Public Use
  Company Number: PHBS2007JP10214

PATIENT
  Age: 61 Year
  Sex: Female
  Weight: 45 kg

DRUGS (6)
  1. ZOMETA [Suspect]
     Indication: METASTASES TO BONE
     Dosage: 4 MG, UNK
     Route: 042
     Dates: start: 20070202, end: 20070202
  2. OXYCONTIN [Concomitant]
     Dosage: 10 MG, UNK
     Route: 048
     Dates: start: 20070201, end: 20070509
  3. NOVAMIN [Concomitant]
     Dosage: 15 MG, UNK
     Route: 048
     Dates: start: 20070201, end: 20070509
  4. HYPEN [Concomitant]
     Dosage: 400 MG, UNK
     Route: 048
     Dates: start: 20070201, end: 20070509
  5. PURSENNID [Concomitant]
     Dosage: 24 MG, UNK
     Route: 048
     Dates: start: 20070201, end: 20070509
  6. RADIOTHERAPY [Concomitant]
     Dates: start: 20070312, end: 20070328

REACTIONS (8)
  - ABSCESS DRAINAGE [None]
  - DEATH [None]
  - HAEMORRHAGE [None]
  - IMPAIRED HEALING [None]
  - OSTEONECROSIS [None]
  - PAIN IN JAW [None]
  - RADICULAR CYST [None]
  - TOOTH EXTRACTION [None]
